FAERS Safety Report 6476635-1 (Version None)
Quarter: 2009Q4

REPORT INFORMATION
  Report Type: 
  Country: None (occurrence: None)
  Receive Date: 20091202
  Receipt Date: 20090114
  Transmission Date: 20100525
  Serious: Yes (Other)
  Sender: FDA-Public Use
  Company Number: 1000010430

PATIENT
  Age: 78 Year
  Sex: Male
  Weight: 66 kg

DRUGS (5)
  1. MEMANTINE HCL [Suspect]
     Indication: DEMENTIA
     Dosage: 10 MG (10 MG,1 IN 1 D),ORAL
     Route: 048
     Dates: start: 20080521, end: 20080525
  2. ARICEPT [Concomitant]
  3. ALLOPURINOL [Concomitant]
  4. DILTIAZEM HCL [Concomitant]
  5. KARDEGIC [Concomitant]

REACTIONS (4)
  - AGITATION [None]
  - BALANCE DISORDER [None]
  - CONDITION AGGRAVATED [None]
  - CONFUSIONAL STATE [None]
